FAERS Safety Report 17914226 (Version 1)
Quarter: 2020Q2

REPORT INFORMATION
  Report Type: Other
  Country: FR (occurrence: FR)
  Receive Date: 20200618
  Receipt Date: 20200618
  Transmission Date: 20200714
  Serious: Yes (Other)
  Sender: FDA-Public Use
  Company Number: FR-VALIDUS PHARMACEUTICALS LLC-FR-2020VAL000483

PATIENT

DRUGS (11)
  1. HALDOL [Suspect]
     Active Substance: HALOPERIDOL
     Indication: AGITATION
     Dosage: 2 MG, UNK
     Route: 042
     Dates: start: 20180227, end: 20180302
  2. CEFOTAXIME SODIUM [Suspect]
     Active Substance: CEFOTAXIME SODIUM
     Indication: PRODUCT USED FOR UNKNOWN INDICATION
     Dosage: 4 G, QD
     Route: 065
     Dates: start: 20180304, end: 20180312
  3. CORDARONE [Concomitant]
     Active Substance: AMIODARONE HYDROCHLORIDE
     Indication: PRODUCT USED FOR UNKNOWN INDICATION
     Dosage: UNK
     Dates: start: 20180217
  4. MEROPENEM. [Suspect]
     Active Substance: MEROPENEM
     Indication: ENDOCARDITIS
     Dosage: 3 G, QD
     Route: 042
     Dates: start: 20180226, end: 20180304
  5. CALCIPARINE [Suspect]
     Active Substance: HEPARIN CALCIUM
     Indication: ATRIAL FIBRILLATION
     Dosage: 100000 IU, QD
     Route: 058
     Dates: start: 20180223, end: 20180228
  6. ZOVIRAX [Suspect]
     Active Substance: ACYCLOVIR
     Indication: HERPES VIRUS INFECTION
     Dosage: 300 MG, QD
     Route: 048
     Dates: start: 20180305, end: 20180308
  7. HEPARIN SODIUM. [Suspect]
     Active Substance: HEPARIN SODIUM
     Indication: ATRIAL FIBRILLATION
     Dosage: 850 IU, QH
     Route: 042
     Dates: start: 20180227, end: 20180307
  8. AMIKACIN SULFATE. [Suspect]
     Active Substance: AMIKACIN SULFATE
     Dosage: 2 G, TOTAL
     Route: 042
     Dates: start: 20180301, end: 20180301
  9. AMIKACIN SULFATE. [Suspect]
     Active Substance: AMIKACIN SULFATE
     Indication: ENDOCARDITIS
     Dosage: 1500 MG, UNK
     Route: 042
     Dates: start: 20180219, end: 20180219
  10. AMIKACIN SULFATE. [Suspect]
     Active Substance: AMIKACIN SULFATE
     Dosage: 1500 MG, UNK
     Route: 042
     Dates: start: 20180221, end: 20180222
  11. RISPERIDONE. [Suspect]
     Active Substance: RISPERIDONE
     Indication: AGITATION
     Dosage: UNK
     Route: 065

REACTIONS (1)
  - Toxic skin eruption [Recovered/Resolved]

NARRATIVE: CASE EVENT DATE: 20200305
